FAERS Safety Report 11682434 (Version 1)
Quarter: 2015Q4

REPORT INFORMATION
  Report Type: Report from Study
  Country: US (occurrence: US)
  Receive Date: 20151029
  Receipt Date: 20151029
  Transmission Date: 20160304
  Serious: No
  Sender: FDA-Public Use
  Company Number: PHEH2015US021618

PATIENT
  Age: 45 Year
  Sex: Female

DRUGS (1)
  1. MEKINIST [Suspect]
     Active Substance: TRAMETINIB DIMETHYL SULFOXIDE
     Indication: ILL-DEFINED DISORDER
     Dosage: 2 MG, QD
     Route: 048
     Dates: start: 20150930

REACTIONS (4)
  - Erythema [Unknown]
  - Nausea [Recovering/Resolving]
  - Rash pruritic [Unknown]
  - Fatigue [Recovering/Resolving]

NARRATIVE: CASE EVENT DATE: 20151007
